FAERS Safety Report 8831829 (Version 2)
Quarter: 2012Q4

REPORT INFORMATION
  Report Type: 
  Country: SI (occurrence: SI)
  Receive Date: 20121009
  Receipt Date: 20121126
  Transmission Date: 20130627
  Serious: Yes (Other)
  Sender: FDA-Public Use
  Company Number: PHHY2012SI087340

PATIENT
  Sex: Female

DRUGS (1)
  1. GILENYA [Suspect]
     Indication: RELAPSING-REMITTING MULTIPLE SCLEROSIS
     Dosage: 0.5 mg, QD
     Dates: start: 201207, end: 201210

REACTIONS (3)
  - Angina pectoris [Recovering/Resolving]
  - Chest pain [Unknown]
  - Neck pain [Unknown]
